FAERS Safety Report 7421155-0 (Version None)
Quarter: 2011Q2

REPORT INFORMATION
  Report Type: 
  Country: None (occurrence: None)
  Receive Date: 20110418
  Receipt Date: 20110408
  Transmission Date: 20111010
  Serious: Yes (Death)
  Sender: FDA-Public Use
  Company Number: US-MILLENNIUM PHARMACEUTICALS, INC.-2010-05716

PATIENT

DRUGS (3)
  1. ETOPOSIDE [Suspect]
     Indication: ACUTE LEUKAEMIA
     Dosage: 100 MG/M2, CYCLIC
  2. VELCADE [Suspect]
     Indication: ACUTE LEUKAEMIA
     Dosage: 1.3 MG/M2, CYCLIC
  3. MITOXANTRONE [Suspect]
     Indication: ACUTE LEUKAEMIA
     Dosage: 10 MG/M2, CYCLIC

REACTIONS (1)
  - PANCYTOPENIA [None]
